FAERS Safety Report 5673694-0 (Version None)
Quarter: 2008Q2

REPORT INFORMATION
  Report Type: 
  Country: None (occurrence: None)
  Receive Date: 20080225
  Receipt Date: 20070328
  Transmission Date: 20081010
  Serious: Yes (Other)
  Sender: FDA-Public Use
  Company Number: WAES 0703USA05318

PATIENT
  Age: 70 Year
  Sex: Male
  Weight: 83.4619 kg

DRUGS (12)
  1. ZOCOR [Suspect]
     Indication: CORONARY ARTERY DISEASE
     Dosage: 80 MG/QHS/PO
     Route: 048
     Dates: start: 19990101, end: 20070320
  2. ZOCOR [Suspect]
     Indication: HYPERLIPIDAEMIA
     Dosage: 80 MG/QHS/PO
     Route: 048
     Dates: start: 19990101, end: 20070320
  3. ZOCOR [Suspect]
     Indication: CORONARY ARTERY DISEASE
     Dosage: PO
     Route: 047
  4. ZOCOR [Suspect]
     Indication: HYPERLIPIDAEMIA
     Dosage: PO
     Route: 047
  5. CARDURA [Concomitant]
  6. HUMULIN 70/30 [Concomitant]
  7. NIASPAN [Concomitant]
  8. ASPIRIN [Concomitant]
  9. ATENOLOL [Concomitant]
  10. FUROSEMIDE [Concomitant]
  11. LISINOPRIL [Concomitant]
  12. METFORMIN [Concomitant]

REACTIONS (4)
  - BLOOD CREATINE PHOSPHOKINASE INCREASED [None]
  - MUSCULAR WEAKNESS [None]
  - MYALGIA [None]
  - OFF LABEL USE [None]
